FAERS Safety Report 6557701-9 (Version None)
Quarter: 2010Q1

REPORT INFORMATION
  Report Type: 
  Country: None (occurrence: None)
  Receive Date: 20100126
  Receipt Date: 20091019
  Transmission Date: 20100710
  Serious: Yes (Other)
  Sender: FDA-Public Use
  Company Number: LMI-2009-00288

PATIENT
  Age: 48 Year
  Sex: Male
  Weight: 100 kg

DRUGS (9)
  1. DEFINITY [Suspect]
     Indication: CHEST PAIN
     Dosage: (0.3 ML),INTRAVENOUS BOLUS ; 0.3 ML (0.1 ML, 3 IN 1 D),INTRAVENOUS BOLUS
     Route: 040
     Dates: start: 20091019, end: 20091019
  2. DEFINITY [Suspect]
     Indication: STRESS ECHOCARDIOGRAM
     Dosage: (0.3 ML),INTRAVENOUS BOLUS ; 0.3 ML (0.1 ML, 3 IN 1 D),INTRAVENOUS BOLUS
     Route: 040
     Dates: start: 20091019, end: 20091019
  3. DEFINITY [Suspect]
     Indication: CHEST PAIN
     Dosage: (0.3 ML),INTRAVENOUS BOLUS ; 0.3 ML (0.1 ML, 3 IN 1 D),INTRAVENOUS BOLUS
     Route: 040
     Dates: start: 20091019, end: 20091019
  4. DEFINITY [Suspect]
     Indication: STRESS ECHOCARDIOGRAM
     Dosage: (0.3 ML),INTRAVENOUS BOLUS ; 0.3 ML (0.1 ML, 3 IN 1 D),INTRAVENOUS BOLUS
     Route: 040
     Dates: start: 20091019, end: 20091019
  5. LISINOPRIL [Concomitant]
  6. DILANTIN (PHENYTOIN) (100 MILLIGRAM, CAPSULES) [Concomitant]
  7. ASPIRIN [Concomitant]
  8. METFORMIN HCL [Concomitant]
  9. CARVEDILOL [Concomitant]

REACTIONS (1)
  - CONVULSION [None]
